FAERS Safety Report 13923511 (Version 1)
Quarter: 2017Q3

REPORT INFORMATION
  Report Type: Spontaneous
  Country: US (occurrence: US)
  Receive Date: 20170830
  Receipt Date: 20170830
  Transmission Date: 20171127
  Serious: Yes (Hospitalization)
  Sender: FDA-Public Use
  Company Number: None

PATIENT
  Age: 33 Year
  Sex: Male
  Weight: 72 kg

DRUGS (1)
  1. CLOZAPINE. [Suspect]
     Active Substance: CLOZAPINE

REACTIONS (5)
  - Malaise [None]
  - Influenza like illness [None]
  - Diarrhoea [None]
  - Myocarditis [None]
  - Headache [None]

NARRATIVE: CASE EVENT DATE: 20170815
